FAERS Safety Report 20443325 (Version 1)
Quarter: 2022Q1

REPORT INFORMATION
  Report Type: Spontaneous
  Country: US (occurrence: None)
  Receive Date: 20220207
  Receipt Date: 20220207
  Transmission Date: 20220423
  Serious: No
  Sender: FDA-Public Use
  Company Number: None

PATIENT
  Age: 36 Year
  Sex: Male
  Weight: 79.38 kg

DRUGS (1)
  1. HUMIRA [Suspect]
     Active Substance: ADALIMUMAB
     Indication: Alopecia scarring
     Dosage: FREQUENCY : WEEKLY;?
     Route: 058
     Dates: start: 201812

REACTIONS (2)
  - COVID-19 [None]
  - Therapy interrupted [None]
